FAERS Safety Report 7410650-6 (Version None)
Quarter: 2011Q2

REPORT INFORMATION
  Report Type: 
  Country: None (occurrence: None)
  Receive Date: 20110413
  Receipt Date: 20101021
  Transmission Date: 20111010
  Serious: Yes (Hospitalization, Other)
  Sender: FDA-Public Use
  Company Number: US-BAYER-200940146NA

PATIENT
  Age: 20 Year
  Sex: Female
  Weight: 84.091 kg

DRUGS (8)
  1. YASMIN [Suspect]
     Indication: CONTRACEPTION
     Dosage: UNK
     Route: 048
     Dates: start: 20080101, end: 20080809
  2. OCELLA [Suspect]
     Indication: CONTRACEPTION
     Dosage: UNK
     Route: 048
     Dates: start: 20080101, end: 20090101
  3. ASCORBIC ACID [Concomitant]
     Dates: start: 20070101, end: 20090101
  4. OCELLA [Suspect]
     Indication: CYST
  5. FLUOXETINE HYDROCHLORIDE [Concomitant]
     Dosage: 20 MG, UNK
  6. YAZ [Suspect]
     Indication: PRODUCT USED FOR UNKNOWN INDICATION
     Route: 048
  7. YASMIN [Suspect]
     Indication: CYST
  8. NEXIUM [Concomitant]
     Dosage: 40 MG, UNK

REACTIONS (4)
  - CHOLECYSTECTOMY [None]
  - DEEP VEIN THROMBOSIS [None]
  - PULMONARY EMBOLISM [None]
  - THROMBOSIS [None]
